FAERS Safety Report 24659153 (Version 1)
Quarter: 2024Q4

REPORT INFORMATION
  Report Type: Spontaneous
  Country: US (occurrence: None)
  Receive Date: 20241122
  Receipt Date: 20241122
  Transmission Date: 20250114
  Serious: Yes (Other)
  Sender: Public
  Company Number: None

PATIENT
  Age: 30 Year
  Sex: Female
  Weight: 93.6 kg

DRUGS (11)
  1. SKYRIZI [Suspect]
     Active Substance: RISANKIZUMAB-RZAA
     Indication: Crohn^s disease
     Dosage: FREQUENCY : MONTHLY;?
     Route: 042
     Dates: start: 20240711, end: 20240823
  2. ENTYVIO [Concomitant]
     Active Substance: VEDOLIZUMAB
  3. ZENPEP [Concomitant]
     Active Substance: PANCRELIPASE AMYLASE\PANCRELIPASE LIPASE\PANCRELIPASE PROTEASE
  4. Dicycloline [Concomitant]
  5. PANTOPRAZOLE [Concomitant]
     Active Substance: PANTOPRAZOLE
  6. PROMETHAZINE [Concomitant]
     Active Substance: PROMETHAZINE HYDROCHLORIDE
  7. TESTOSTERONE [Concomitant]
     Active Substance: TESTOSTERONE
  8. TYLENOL [Concomitant]
     Active Substance: ACETAMINOPHEN
  9. Multivitamin men^s [Concomitant]
  10. VITAMIN D [Concomitant]
     Active Substance: VITAMIN D NOS
  11. FISH OIL [Concomitant]
     Active Substance: FISH OIL

REACTIONS (4)
  - Rash [None]
  - Ephelides [None]
  - Swelling [None]
  - Haemorrhage [None]

NARRATIVE: CASE EVENT DATE: 20240826
